FAERS Safety Report 8925123 (Version 2)
Quarter: 2013Q1

REPORT INFORMATION
  Report Type: Report from Study
  Country: US (occurrence: US)
  Receive Date: 20121126
  Receipt Date: 20130102
  Transmission Date: 20140127
  Serious: No
  Sender: FDA-Public Use
  Company Number: US-VERTEX PHARMACEUTICAL INC.-2012-024951

PATIENT
  Age: 54 None
  Sex: Female
  Weight: 99 kg

DRUGS (3)
  1. VX-950 (TELAPREVIR) [Suspect]
     Indication: HEPATITIS C
     Dosage: 750 MG, TID
     Route: 048
     Dates: start: 20121109
  2. PEGASYS [Suspect]
     Indication: HEPATITIS C
     Dosage: 180 ?G, QW
     Route: 058
     Dates: start: 20121109
  3. RIBAPAK [Suspect]
     Indication: HEPATITIS C
     Dosage: 600 MG, BID
     Route: 048
     Dates: start: 20121109

REACTIONS (8)
  - Inappropriate schedule of drug administration [Recovered/Resolved]
  - Influenza like illness [Unknown]
  - Insomnia [Unknown]
  - Fatigue [Unknown]
  - Rash [Unknown]
  - Anorectal discomfort [Not Recovered/Not Resolved]
  - Anal pruritus [Unknown]
  - Pruritus [Not Recovered/Not Resolved]
